FAERS Safety Report 15863357 (Version 1)
Quarter: 2019Q1

REPORT INFORMATION
  Report Type: Spontaneous
  Country: US (occurrence: US)
  Receive Date: 20190124
  Receipt Date: 20190124
  Transmission Date: 20190417
  Serious: No
  Sender: FDA-Public Use
  Company Number: None

PATIENT
  Age: 23 Year
  Sex: Female
  Weight: 68.4 kg

DRUGS (2)
  1. AVEENO ACTIVE NATURALS CLEAR COMPLEXION DAILY CLEANSING PADS [Suspect]
     Active Substance: SALICYLIC ACID
     Indication: PERSONAL HYGIENE
     Route: 061
     Dates: start: 20190122, end: 20190122
  2. MIRENA [Concomitant]
     Active Substance: LEVONORGESTREL

REACTIONS (5)
  - Pruritus [None]
  - Eye swelling [None]
  - Burning sensation [None]
  - Swelling face [None]
  - Erythema [None]

NARRATIVE: CASE EVENT DATE: 20190123
